FAERS Safety Report 5474619-3 (Version None)
Quarter: 2007Q3

REPORT INFORMATION
  Report Type: 
  Country: None (occurrence: None)
  Receive Date: 20070928
  Receipt Date: 20070925
  Transmission Date: 20080115
  Serious: Yes (Other)
  Sender: FDA-Public Use
  Company Number: 2007SP017792

PATIENT
  Age: 66 Year
  Sex: Female
  Weight: 89.3586 kg

DRUGS (3)
  1. TEMODAR [Suspect]
     Indication: GLIOBLASTOMA MULTIFORME
     Dosage: 140 MG; PO, 150 MG; PO, 150 MG, PO
     Route: 048
     Dates: start: 20070328, end: 20070401
  2. TEMODAR [Suspect]
     Indication: GLIOBLASTOMA MULTIFORME
     Dosage: 140 MG; PO, 150 MG; PO, 150 MG, PO
     Route: 048
     Dates: start: 20070604, end: 20070608
  3. TEMODAR [Suspect]
     Indication: GLIOBLASTOMA MULTIFORME
     Dosage: 140 MG; PO, 150 MG; PO, 150 MG, PO
     Route: 048
     Dates: start: 20070702, end: 20070706

REACTIONS (1)
  - BREAST CANCER FEMALE [None]
